FAERS Safety Report 5977280-4 (Version None)
Quarter: 2008Q4

REPORT INFORMATION
  Report Type: 
  Country: None (occurrence: None)
  Receive Date: 20081203
  Receipt Date: 20081124
  Transmission Date: 20090506
  Serious: Yes (Other)
  Sender: FDA-Public Use
  Company Number: US-BAYER-200839338NA

PATIENT
  Age: 47 Year
  Sex: Female
  Weight: 130 kg

DRUGS (3)
  1. MIRENA [Suspect]
     Indication: CONTRACEPTION
     Route: 015
     Dates: start: 20071219
  2. DAUNORUBICIN [Concomitant]
     Indication: DRUG USE FOR UNKNOWN INDICATION
     Dates: start: 20080501, end: 20081001
  3. CYTARABINE [Concomitant]
     Indication: DRUG USE FOR UNKNOWN INDICATION
     Dates: start: 20080501, end: 20081001

REACTIONS (2)
  - LEUKAEMIA [None]
  - MENORRHAGIA [None]
